FAERS Safety Report 9411626 (Version 2)
Quarter: 2013Q3

REPORT INFORMATION
  Report Type: Spontaneous
  Country: FR (occurrence: FR)
  Receive Date: 20130722
  Receipt Date: 20130808
  Transmission Date: 20140515
  Serious: Yes (Hospitalization)
  Sender: FDA-Public Use
  Company Number: FR-009507513-1307FRA007265

PATIENT
  Age: 57 Year
  Sex: Female

DRUGS (5)
  1. TIMOPTOL [Suspect]
     Route: 047
  2. PROZAC [Suspect]
     Dosage: UNK
     Route: 048
     Dates: start: 201205, end: 201304
  3. HYTACAND [Suspect]
     Route: 048
  4. DIFFU-K [Suspect]
     Route: 048
  5. FUROSEMIDE [Suspect]
     Route: 048

REACTIONS (1)
  - Sjogren^s syndrome [Unknown]
